FAERS Safety Report 11886242 (Version 2)
Quarter: 2016Q1

REPORT INFORMATION
  Report Type: Spontaneous
  Country: JP (occurrence: JP)
  Receive Date: 20160104
  Receipt Date: 20160104
  Transmission Date: 20160526
  Serious: Yes (Hospitalization)
  Sender: FDA-Public Use
  Company Number: JP-BAYER-2015-447571

PATIENT
  Age: 74 Year
  Sex: Male
  Weight: 55 kg

DRUGS (12)
  1. XARELTO [Suspect]
     Active Substance: RIVAROXABAN
     Indication: CEREBROVASCULAR ACCIDENT PROPHYLAXIS
  2. DOXAZOSIN [Concomitant]
     Active Substance: DOXAZOSIN\DOXAZOSIN MESYLATE
     Dosage: 1 MG, QD
     Route: 048
     Dates: start: 2012
  3. BAYASPIRIN [Suspect]
     Active Substance: ASPIRIN
     Indication: CEREBRAL THROMBOSIS
     Dosage: 100 MG, QD
     Route: 048
     Dates: start: 20091029, end: 20140313
  4. XARELTO [Suspect]
     Active Substance: RIVAROXABAN
     Indication: ATRIAL FIBRILLATION
     Dosage: 10 MG, QD
     Route: 048
     Dates: start: 20130531, end: 20150902
  5. CELECOXIB. [Concomitant]
     Active Substance: CELECOXIB
     Dosage: 100 MG, DAILY
     Route: 048
     Dates: start: 2012
  6. LANDSEN [Concomitant]
     Active Substance: CLONAZEPAM
     Dosage: 5 MG, QD
     Route: 048
     Dates: start: 2012
  7. FEBUXOSTAT. [Concomitant]
     Active Substance: FEBUXOSTAT
     Dosage: 10 MG, DAILY
     Route: 048
     Dates: start: 20141226
  8. LASIX [Concomitant]
     Active Substance: FUROSEMIDE
     Dosage: 40 MG, QD
     Route: 048
     Dates: start: 2012
  9. RIZE [Concomitant]
     Active Substance: CLOTIAZEPAM
     Dosage: 5 MG, QD
     Route: 048
     Dates: start: 2012
  10. LAC-B [Concomitant]
     Active Substance: BIFIDOBACTERIUM SPP.
     Dosage: 3 G, QD
     Route: 048
     Dates: start: 2012
  11. XARELTO [Suspect]
     Active Substance: RIVAROXABAN
     Indication: CEREBRAL INFARCTION
  12. LANSOPRAZOLE. [Concomitant]
     Active Substance: LANSOPRAZOLE
     Dosage: 15 MG, QD
     Route: 048
     Dates: start: 2012

REACTIONS (5)
  - Pyrexia [Recovered/Resolved]
  - Interstitial lung disease [Recovered/Resolved]
  - Diverticulum intestinal haemorrhagic [Recovered/Resolved]
  - Cough [Recovered/Resolved]
  - Dyspnoea exertional [Recovered/Resolved]

NARRATIVE: CASE EVENT DATE: 20140124
